FAERS Safety Report 15178886 (Version 1)
Quarter: 2018Q3

REPORT INFORMATION
  Report Type: Spontaneous
  Country: PL (occurrence: PL)
  Receive Date: 20180722
  Receipt Date: 20180722
  Transmission Date: 20181010
  Serious: Yes (Life-Threatening, Hospitalization, Other)
  Sender: FDA-Public Use
  Company Number: PHHY2014PL185220

PATIENT
  Age: 65 Year
  Sex: Female

DRUGS (14)
  1. TIOTROPIUM [Suspect]
     Active Substance: TIOTROPIUM
     Indication: CHRONIC OBSTRUCTIVE PULMONARY DISEASE
     Dosage: 18 UG, QD
     Route: 055
     Dates: start: 20090525
  2. BENRALIZUMAB. [Suspect]
     Active Substance: BENRALIZUMAB
     Dosage: 30 MG, QMO
     Route: 058
     Dates: start: 201511
  3. BENRALIZUMAB. [Suspect]
     Active Substance: BENRALIZUMAB
     Indication: CHRONIC OBSTRUCTIVE PULMONARY DISEASE
     Dosage: 30 MG, QMO
     Route: 058
     Dates: start: 201412
  4. BENRALIZUMAB. [Suspect]
     Active Substance: BENRALIZUMAB
     Dosage: 30 MG, QMO
     Route: 058
     Dates: start: 201503
  5. BENRALIZUMAB. [Suspect]
     Active Substance: BENRALIZUMAB
     Dosage: 30 MG, QMO
     Route: 058
     Dates: start: 201507
  6. AMLODIPINE [Concomitant]
     Active Substance: AMLODIPINE BESYLATE
     Indication: HYPERTENSION
     Dosage: 5 MG, QD
     Route: 048
     Dates: start: 20100605
  7. FORMOTEROL [Suspect]
     Active Substance: FORMOTEROL
     Indication: CHRONIC OBSTRUCTIVE PULMONARY DISEASE
     Dosage: 24 MG, Q12H
     Route: 055
     Dates: start: 20140716
  8. METOPROLOL. [Concomitant]
     Active Substance: METOPROLOL
     Indication: HYPERTENSION
     Dosage: 50 MG, QD
     Route: 048
     Dates: start: 20050614
  9. BENRALIZUMAB. [Suspect]
     Active Substance: BENRALIZUMAB
     Dosage: 30 MG, QMO
     Route: 058
     Dates: start: 201501
  10. BENRALIZUMAB. [Suspect]
     Active Substance: BENRALIZUMAB
     Dosage: 30 MG, QMO
     Route: 058
     Dates: start: 201505
  11. THEOPHYLLINE [Concomitant]
     Active Substance: THEOPHYLLINE ANHYDROUS
     Indication: CHRONIC OBSTRUCTIVE PULMONARY DISEASE
     Dosage: 300 MG, QD
     Route: 048
     Dates: start: 20111128
  12. VALSARTAN. [Concomitant]
     Active Substance: VALSARTAN
     Indication: HYPERTENSION
     Dosage: 80 MG, QD
     Route: 048
     Dates: start: 20010320
  13. BECLOMETASONE [Suspect]
     Active Substance: BECLOMETHASONE DIPROPIONATE
     Indication: CHRONIC OBSTRUCTIVE PULMONARY DISEASE
     Dosage: 500 MG, Q12H
     Route: 055
     Dates: start: 20141109
  14. BENRALIZUMAB. [Suspect]
     Active Substance: BENRALIZUMAB
     Dosage: 30 MG, QMO
     Route: 058
     Dates: start: 201509

REACTIONS (1)
  - Pneumonia [Recovered/Resolved]

NARRATIVE: CASE EVENT DATE: 20141221
